FAERS Safety Report 24437034 (Version 1)
Quarter: 2024Q4

REPORT INFORMATION
  Report Type: Spontaneous
  Country: US (occurrence: None)
  Receive Date: 20241011
  Receipt Date: 20241011
  Transmission Date: 20250114
  Serious: Yes (Hospitalization)
  Sender: Public
  Company Number: None

PATIENT
  Age: 85 Year
  Sex: Male

DRUGS (1)
  1. APIXABAN [Suspect]
     Active Substance: APIXABAN
     Indication: Atrial fibrillation

REACTIONS (7)
  - Haemorrhage [None]
  - Thrombosis [None]
  - Liver injury [None]
  - Biliary obstruction [None]
  - Acute kidney injury [None]
  - Hypophagia [None]
  - Therapy interrupted [None]

NARRATIVE: CASE EVENT DATE: 20240630
